FAERS Safety Report 21490930 (Version 2)
Quarter: 2022Q4

REPORT INFORMATION
  Report Type: Report from Study
  Country: AU (occurrence: AU)
  Receive Date: 20221021
  Receipt Date: 20221116
  Transmission Date: 20230113
  Serious: Yes (Hospitalization)
  Sender: FDA-Public Use
  Company Number: AU-BIOGEN-2021BI01046649

PATIENT
  Sex: Female

DRUGS (4)
  1. TECFIDERA [Suspect]
     Active Substance: DIMETHYL FUMARATE
     Indication: Multiple sclerosis
     Route: 050
     Dates: start: 20210505
  2. TECFIDERA [Suspect]
     Active Substance: DIMETHYL FUMARATE
     Route: 050
  3. VITAMIN D [Concomitant]
     Active Substance: VITAMIN D NOS
     Indication: Vitamin D decreased
     Route: 050
  4. FAMVIR [Concomitant]
     Active Substance: FAMCICLOVIR
     Indication: Herpes simplex
     Dosage: PRN
     Route: 050

REACTIONS (4)
  - Arthritis [Recovered/Resolved]
  - Synovial cyst [Not Recovered/Not Resolved]
  - Dizziness [Recovered/Resolved]
  - Ligament injury [Unknown]
